FAERS Safety Report 5630999-7 (Version None)
Quarter: 2008Q1

REPORT INFORMATION
  Report Type: 
  Country: None (occurrence: None)
  Receive Date: 20080219
  Receipt Date: 20080208
  Transmission Date: 20080703
  Serious: Yes (Other)
  Sender: FDA-Public Use
  Company Number: FR-PFIZER INC-2008013139

PATIENT
  Age: 50 Year
  Sex: Male

DRUGS (8)
  1. EPLERENONE [Suspect]
     Indication: MYOCARDIAL INFARCTION
  2. ESOMEPRAZOLE MAGNESIUM [Concomitant]
  3. FLUINDIONE [Concomitant]
  4. CLOPIDOGREL [Concomitant]
  5. ACETYLSALICYLATE LYSINE [Concomitant]
  6. OMEGA 3/VITAMIN E [Concomitant]
  7. BISOPROLOL FUMARATE [Concomitant]
  8. ATORVASTATIN CALCIUM [Concomitant]

REACTIONS (1)
  - HYPOKALAEMIA [None]
